FAERS Safety Report 20916343 (Version 1)
Quarter: 2022Q2

REPORT INFORMATION
  Report Type: Spontaneous
  Country: US (occurrence: US)
  Receive Date: 20220604
  Receipt Date: 20220604
  Transmission Date: 20220720
  Serious: No
  Sender: FDA-Public Use
  Company Number: US-CELGENE-USA-20220205006

PATIENT
  Age: 81 Year
  Sex: Male
  Weight: 69.3 kg

DRUGS (2)
  1. REVLIMID [Suspect]
     Active Substance: LENALIDOMIDE
     Indication: Plasma cell myeloma
     Dosage: 25 MILLIGRAM
     Route: 048
     Dates: start: 202007
  2. REVLIMID [Suspect]
     Active Substance: LENALIDOMIDE
     Dosage: FREQ:DAILY FOR 21 DAYS.
     Route: 048
     Dates: start: 20220318, end: 20220501

REACTIONS (2)
  - Full blood count decreased [Unknown]
  - Muscle spasms [Unknown]
